FAERS Safety Report 9827866 (Version 4)
Quarter: 2014Q2

REPORT INFORMATION
  Report Type: Report from Study
  Country: US (occurrence: US)
  Receive Date: 20140117
  Receipt Date: 20140407
  Transmission Date: 20141212
  Serious: Yes (Hospitalization, Other)
  Sender: FDA-Public Use
  Company Number: US-BRISTOL-MYERS SQUIBB COMPANY-19976273

PATIENT
  Age: 67 Year
  Sex: Male
  Weight: 70.58 kg

DRUGS (9)
  1. BELATACEPT [Suspect]
     Indication: RENAL TRANSPLANT
     Dosage: THERAPY DATE 19-FEB-2014
     Route: 042
     Dates: start: 20131125
  2. CELLCEPT [Suspect]
     Indication: RENAL TRANSPLANT
  3. TOPROL [Concomitant]
     Dosage: XL
  4. NYSTATIN [Concomitant]
  5. LEVOTHYROXINE [Concomitant]
  6. BACTRIM [Concomitant]
     Dosage: BACTRIM MWF
  7. VALGANCICLOVIR [Concomitant]
  8. TRAZODONE HCL [Concomitant]
  9. INSULIN [Concomitant]
     Dosage: LISPO

REACTIONS (7)
  - Lymphadenopathy [Recovered/Resolved]
  - Cerebral ventricle dilatation [Unknown]
  - Herpes zoster [Unknown]
  - Cytomegalovirus infection [Unknown]
  - Enterobacter infection [Unknown]
  - Adenovirus infection [Unknown]
  - Fungal infection [Unknown]
